FAERS Safety Report 7610908-1 (Version None)
Quarter: 2011Q3

REPORT INFORMATION
  Report Type: 
  Country: None (occurrence: None)
  Receive Date: 20110715
  Receipt Date: 20110706
  Transmission Date: 20111222
  Serious: Yes (Hospitalization)
  Sender: FDA-Public Use
  Company Number: JP-BRISTOL-MYERS SQUIBB COMPANY-15893811

PATIENT
  Age: 2 Decade
  Sex: Female

DRUGS (1)
  1. BARACLUDE [Suspect]
     Indication: HEPATITIS B
     Dosage: FORMU: ENTECAVIR HYDRATE
     Route: 048
     Dates: start: 20100101

REACTIONS (7)
  - CARDIAC ARREST [None]
  - MATERNAL EXPOSURE DURING PREGNANCY [None]
  - HEPATITIS FULMINANT [None]
  - HEPATIC ENCEPHALOPATHY [None]
  - CARDIAC FAILURE [None]
  - PROCEDURAL COMPLICATION [None]
  - PREGNANCY [None]
